FAERS Safety Report 11891333 (Version 1)
Quarter: 2016Q1

REPORT INFORMATION
  Report Type: Spontaneous
  Country: US (occurrence: US)
  Receive Date: 20160106
  Receipt Date: 20160106
  Transmission Date: 20160526
  Serious: No
  Sender: FDA-Public Use
  Company Number: US-BAYER-2016-002253

PATIENT
  Age: 84 Year
  Sex: Female
  Weight: 79.37 kg

DRUGS (2)
  1. NARCOTINE SANKEN [Concomitant]
  2. MIRALAX [Suspect]
     Active Substance: POLYETHYLENE GLYCOL 3350
     Indication: CONSTIPATION
     Dosage: 1 DF, QD
     Route: 048

REACTIONS (2)
  - Frequent bowel movements [Recovering/Resolving]
  - Product use issue [None]
